FAERS Safety Report 5992926-2 (Version None)
Quarter: 2008Q4

REPORT INFORMATION
  Report Type: 
  Country: None (occurrence: None)
  Receive Date: 20081212
  Receipt Date: 20081118
  Transmission Date: 20090506
  Serious: No
  Sender: FDA-Public Use
  Company Number: US-JNJFOC-20081104728

PATIENT
  Sex: Female

DRUGS (4)
  1. INVEGA [Suspect]
     Indication: DRUG USE FOR UNKNOWN INDICATION
     Route: 048
  2. AMBIEN [Concomitant]
     Indication: SLEEP DISORDER
  3. CLONOPIN [Concomitant]
     Indication: MUSCLE RELAXANT THERAPY
  4. ZYRTEC [Concomitant]
     Indication: MULTIPLE ALLERGIES

REACTIONS (4)
  - FEELING OF BODY TEMPERATURE CHANGE [None]
  - LETHARGY [None]
  - PUPILLARY REFLEX IMPAIRED [None]
  - SWELLING FACE [None]
